FAERS Safety Report 6749773-3 (Version None)
Quarter: 2010Q2

REPORT INFORMATION
  Report Type: 
  Country: None (occurrence: None)
  Receive Date: 20100527
  Receipt Date: 20100511
  Transmission Date: 20101027
  Serious: Yes (Hospitalization)
  Sender: FDA-Public Use
  Company Number: 7004345

PATIENT
  Age: 40 Year
  Sex: Female

DRUGS (13)
  1. LEVOTHYROXINE SODIUM [Suspect]
     Indication: DRUG USE FOR UNKNOWN INDICATION
     Dosage: 50 MCG ORAL
     Route: 048
     Dates: end: 20100106
  2. PREVISCAN (FLUINDIONE) (FLUINDIONE) [Suspect]
     Indication: DRUG USE FOR UNKNOWN INDICATION
     Dosage: 15 MG ORAL
     Route: 048
     Dates: end: 20100113
  3. TRUVADA (EMTRICITABINE) (EMTRICITABINE) [Concomitant]
  4. ISENTRESS [Concomitant]
  5. PROPANOLOL (PROPRANOLOL) (PROPRANOLOL) [Concomitant]
  6. RIVOTRIL (CLONAZEPAM) (CLONAZEPAM) [Concomitant]
  7. XANAX (ALPRAZOLAM) (0.25 MG) (ALPRAZOLAM) [Concomitant]
  8. DUROGESIC (FENTANYL) (50) (FENTANYL) [Concomitant]
  9. TARDYFERON (FERROUS SULFATE) (FERROUS SULFATE) [Concomitant]
  10. PARIET (RABEPRAZOLE SODIUM) (RABEPRAZOLE SODIUM) [Concomitant]
  11. BETASERC (BETAHISTINE) (BETAHISTINE) [Concomitant]
  12. BION 3 (BION 3) [Concomitant]
  13. MAG 2 (MAGNESIUM PIDOLATE) (MAGNESIUM PIDOLATE) [Concomitant]

REACTIONS (6)
  - ABDOMINAL PAIN UPPER [None]
  - DRUG INTERACTION [None]
  - GASTROINTESTINAL DISORDER [None]
  - INSOMNIA [None]
  - INTERNATIONAL NORMALISED RATIO INCREASED [None]
  - VARICES OESOPHAGEAL [None]
